FAERS Safety Report 7075003-1 (Version None)
Quarter: 2010Q4

REPORT INFORMATION
  Report Type: 
  Country: None (occurrence: None)
  Receive Date: 20101029
  Receipt Date: 20100210
  Transmission Date: 20110411
  Serious: No
  Sender: FDA-Public Use
  Company Number: US-WYE-H12947210

PATIENT
  Sex: Female
  Weight: 70.37 kg

DRUGS (3)
  1. ALAVERT [Suspect]
     Indication: EYE PRURITUS
     Dosage: ONE TABLET AS NEEDED
     Route: 048
     Dates: start: 20090101, end: 20090101
  2. ALAVERT [Suspect]
     Indication: EYE ALLERGY
  3. GLUCOPHAGE [Concomitant]

REACTIONS (1)
  - DRUG EFFECT DECREASED [None]
